FAERS Safety Report 5135556-7 (Version None)
Quarter: 2006Q4

REPORT INFORMATION
  Report Type: 
  Country: None (occurrence: None)
  Receive Date: 20061026
  Receipt Date: 20061023
  Transmission Date: 20070319
  Serious: Yes (Hospitalization)
  Sender: FDA-Public Use
  Company Number: AU-BRISTOL-MYERS SQUIBB COMPANY-13554027

PATIENT
  Age: 58 Year
  Sex: Female

DRUGS (5)
  1. ETOPOSIDE [Suspect]
     Indication: MALIGNANT LYMPHOID NEOPLASM
     Dates: start: 20050408, end: 20050410
  2. CARBOPLATIN [Suspect]
     Indication: MALIGNANT LYMPHOID NEOPLASM
     Dates: start: 20050409, end: 20050409
  3. IFOSFAMIDE [Suspect]
     Indication: MALIGNANT LYMPHOID NEOPLASM
     Route: 042
     Dates: start: 20050409, end: 20050409
  4. MESNA [Suspect]
     Indication: PROPHYLAXIS
     Dates: start: 20050409, end: 20050409
  5. RITUXIMAB [Suspect]
     Indication: MALIGNANT LYMPHOID NEOPLASM
     Dates: start: 20050408, end: 20050408

REACTIONS (2)
  - FEBRILE NEUTROPENIA [None]
  - POLLAKIURIA [None]
